FAERS Safety Report 7332501-0 (Version None)
Quarter: 2011Q1

REPORT INFORMATION
  Report Type: 
  Country: None (occurrence: None)
  Receive Date: 20110304
  Receipt Date: 20110301
  Transmission Date: 20110831
  Serious: Yes (Hospitalization, Other)
  Sender: FDA-Public Use
  Company Number: BR-ABBOTT-11P-020-0708459-00

PATIENT
  Sex: Female
  Weight: 53 kg

DRUGS (16)
  1. FLUOXETINE [Concomitant]
     Indication: AFFECTIVE DISORDER
     Route: 048
  2. NOVALGINA [Concomitant]
     Indication: PAIN
     Route: 048
  3. RIVOTRIL [Concomitant]
     Indication: MUSCLE RELAXANT THERAPY
  4. SYNTHROID [Suspect]
     Indication: HORMONE REPLACEMENT THERAPY
     Route: 048
  5. CAPTOPRIL [Concomitant]
     Route: 048
     Dates: start: 20101201
  6. CAPTOPRIL [Concomitant]
     Indication: HYPERTENSION
     Route: 048
     Dates: start: 20101201
  7. GABAPENTIN [Concomitant]
     Indication: CONVULSION PROPHYLAXIS
     Route: 048
  8. SPIRONOLACTONE [Concomitant]
     Indication: DIURETIC THERAPY
     Route: 048
  9. LUFTAL [Concomitant]
     Indication: PROPHYLAXIS
     Route: 048
  10. SIMVASTATIN [Concomitant]
     Indication: BLOOD CHOLESTEROL ABNORMAL
  11. RIVOTRIL [Concomitant]
     Indication: SLEEP DISORDER THERAPY
     Route: 048
  12. METOPROLOL TARTRATE [Concomitant]
     Indication: HEART RATE INCREASED
     Route: 048
  13. VONAU [Concomitant]
     Indication: PROPHYLAXIS OF NAUSEA AND VOMITING
     Route: 060
  14. AAS [Concomitant]
     Indication: PRODUCT USED FOR UNKNOWN INDICATION
     Route: 048
  15. LUFTAL [Concomitant]
     Indication: FLATULENCE
  16. SIMVASTATIN [Concomitant]
     Indication: PROPHYLAXIS
     Route: 048

REACTIONS (4)
  - FEMORAL ARTERY ANEURYSM [None]
  - DRUG INEFFECTIVE [None]
  - BLOOD THYROID STIMULATING HORMONE ABNORMAL [None]
  - ABDOMINAL PAIN UPPER [None]
